FAERS Safety Report 7210139-3 (Version None)
Quarter: 2011Q1

REPORT INFORMATION
  Report Type: 
  Country: None (occurrence: None)
  Receive Date: 20110105
  Receipt Date: 20101223
  Transmission Date: 20110831
  Serious: Yes (Other)
  Sender: FDA-Public Use
  Company Number: FR-ELI_LILLY_AND_COMPANY-FR201012005813

PATIENT

DRUGS (1)
  1. ZYPREXA [Suspect]
     Indication: DELUSION
     Dosage: 10 MG, DAILY (1/D)
     Route: 064
     Dates: start: 20100225

REACTIONS (2)
  - DRUG EXPOSURE DURING PREGNANCY [None]
  - ABNORMAL BEHAVIOUR [None]
